FAERS Safety Report 7912688-9 (Version None)
Quarter: 2011Q4

REPORT INFORMATION
  Report Type: 
  Country: None (occurrence: None)
  Receive Date: 20111114
  Receipt Date: 20111111
  Transmission Date: 20120403
  Serious: Yes (Death, Hospitalization)
  Sender: FDA-Public Use
  Company Number: HU-ABBOTT-11P-076-0871453-00

PATIENT
  Sex: Female
  Weight: 87 kg

DRUGS (16)
  1. CORDARONE [Concomitant]
     Indication: PRODUCT USED FOR UNKNOWN INDICATION
     Route: 048
  2. FUROSEMIDE [Concomitant]
     Indication: PRODUCT USED FOR UNKNOWN INDICATION
     Route: 048
  3. CALCICARB [Concomitant]
     Indication: PRODUCT USED FOR UNKNOWN INDICATION
     Route: 048
  4. ATORVOX [Concomitant]
     Indication: HYPERCHOLESTEROLAEMIA
     Route: 048
  5. ALLOPURINOL [Concomitant]
     Indication: PRODUCT USED FOR UNKNOWN INDICATION
     Route: 048
  6. HUMULIN R [Concomitant]
     Indication: DIABETES MELLITUS
     Route: 058
  7. LYRICA [Concomitant]
     Indication: DIABETIC NEPHROPATHY
     Route: 048
  8. ASPIRIN [Concomitant]
     Indication: PRODUCT USED FOR UNKNOWN INDICATION
     Route: 048
  9. LANSOPTOL [Concomitant]
     Indication: PRODUCT USED FOR UNKNOWN INDICATION
     Route: 048
  10. TENAXUM [Concomitant]
     Indication: HYPERTENSION
     Route: 048
  11. ZEMPLAR [Suspect]
     Indication: RENAL FAILURE CHRONIC
     Dosage: 7.25MCG/DIALYSIS 3 TIMES WEEKLY
     Route: 042
     Dates: start: 20110402
  12. UREGYT [Concomitant]
     Indication: PRODUCT USED FOR UNKNOWN INDICATION
     Route: 048
  13. NEBIBETA [Concomitant]
     Indication: HYPERTENSION
  14. HUMULIN N [Concomitant]
     Indication: DIABETES MELLITUS
  15. LERCATON [Concomitant]
     Indication: HYPERTENSION
     Route: 048
  16. IRBESARTAN [Concomitant]
     Indication: HYPERTENSION
     Route: 048

REACTIONS (2)
  - CEREBROVASCULAR ACCIDENT [None]
  - PNEUMONIA [None]
